FAERS Safety Report 23090541 (Version 1)
Quarter: 2023Q4

REPORT INFORMATION
  Report Type: Spontaneous
  Country: US (occurrence: US)
  Receive Date: 20231020
  Receipt Date: 20231020
  Transmission Date: 20240109
  Serious: Yes (Death, Hospitalization, Other)
  Sender: FDA-Public Use
  Company Number: US-Fresenius Medical Care Renal Therapies Group-FMC-2310-001119

PATIENT
  Age: 76 Year
  Sex: Female

DRUGS (3)
  1. DELFLEX WITH DEXTROSE 1.5% LOW MAGNESIUM LOW CALCIUM [Suspect]
     Active Substance: CALCIUM CHLORIDE\DEXTROSE\MAGNESIUM CHLORIDE\SODIUM CHLORIDE\SODIUM LACTATE
     Indication: End stage renal disease
     Dosage: 7 DAYS-A-WEEK EXCHANGES = 4, FILL VOLUME = 2000 ML, DWELL TIME = 1.5 HOURS, LAST FILL = N/A, DAYTIME
     Route: 033
  2. DELFLEX WITH DEXTROSE 2.5% LOW MAGNESIUM LOW CALCIUM [Suspect]
     Active Substance: CALCIUM CHLORIDE\DEXTROSE\MAGNESIUM CHLORIDE\SODIUM CHLORIDE\SODIUM LACTATE
     Indication: End stage renal disease
     Dosage: 7 DAYS-A-WEEK, EXCHANGES = 4, FILL VOLUME = 2000 ML, DWELL TIME = 1.5 HOURS, LAST FILL = N/A, DAYTIM
     Route: 033
  3. DELFLEX WITH DEXTROSE 4.25% LOW MAGNESIUM LOW CALCIUM [Suspect]
     Active Substance: CALCIUM CHLORIDE\DEXTROSE\MAGNESIUM CHLORIDE\SODIUM CHLORIDE\SODIUM LACTATE
     Indication: End stage renal disease
     Dosage: 7 DAYS-A-WEEK, EXCHANGES = 4, FILL VOLUME = 2000 ML, DWELL TIME = 1.5 HOURS, LAST FILL = N/A, DAYTIM
     Route: 033

REACTIONS (4)
  - Sepsis [Fatal]
  - Right ventricular failure [Fatal]
  - Urinary tract infection [Fatal]
  - Peritonitis [Fatal]

NARRATIVE: CASE EVENT DATE: 20230929
